FAERS Safety Report 19224865 (Version 1)
Quarter: 2021Q2

REPORT INFORMATION
  Report Type: Spontaneous
  Country: US (occurrence: US)
  Receive Date: 20210505
  Receipt Date: 20210505
  Transmission Date: 20210717
  Serious: No
  Sender: FDA-Public Use
  Company Number: US-ROCHE-2761143

PATIENT
  Sex: Male

DRUGS (2)
  1. ESBRIET [Suspect]
     Active Substance: PIRFENIDONE
     Indication: IDIOPATHIC PULMONARY FIBROSIS
     Dosage: ONE TABLET THREE TIMES DAILY FOR A WEEK, THEN TWO TABLETS THREE TIMES DAILY FOR A WEEK, THREE TABLET
     Route: 048
     Dates: start: 20201124
  2. ESBRIET [Suspect]
     Active Substance: PIRFENIDONE
     Indication: IDIOPATHIC PULMONARY FIBROSIS
     Dosage: 2 CAPSULES, THREE TIMES PER DAY ORALLY WITH MEALS
     Route: 048

REACTIONS (1)
  - Insomnia [Recovered/Resolved]
